FAERS Safety Report 21876671 (Version 1)
Quarter: 2023Q1

REPORT INFORMATION
  Report Type: Report from Study
  Country: US (occurrence: US)
  Receive Date: 20230118
  Receipt Date: 20230118
  Transmission Date: 20230418
  Serious: No
  Sender: FDA-Public Use
  Company Number: US-ABBVIE-4240413

PATIENT
  Sex: Female

DRUGS (3)
  1. SKYRIZI [Suspect]
     Active Substance: RISANKIZUMAB-RZAA
     Indication: Psoriasis
     Dosage: 150 MILLIGRAM AT WEEK 4 THEN EVERY TWELVE WEEKS THEREAFTER
     Route: 058
     Dates: start: 20220913
  2. LIPITOR TAB 20MG [Concomitant]
     Indication: Product used for unknown indication
  3. COZAAR TAB 100MG [Concomitant]
     Indication: Product used for unknown indication

REACTIONS (1)
  - Upper respiratory tract infection [Not Recovered/Not Resolved]
